FAERS Safety Report 12788024 (Version 1)
Quarter: 2016Q3

REPORT INFORMATION
  Report Type: Report from Study
  Country: US (occurrence: US)
  Receive Date: 20160928
  Receipt Date: 20160928
  Transmission Date: 20161109
  Serious: Yes (Other)
  Sender: FDA-Public Use
  Company Number: US-ROCHE-1835329

PATIENT
  Age: 56 Year
  Sex: Female
  Weight: 40 kg

DRUGS (7)
  1. BEVACIZUMAB [Suspect]
     Active Substance: BEVACIZUMAB
     Indication: CARCINOID TUMOUR
     Dosage: CYCLE 1
     Route: 042
     Dates: start: 20091222
  2. BEVACIZUMAB [Suspect]
     Active Substance: BEVACIZUMAB
     Dosage: CYCLE 3
     Route: 042
     Dates: start: 20091222
  3. TEMSIROLIMUS [Suspect]
     Active Substance: TEMSIROLIMUS
     Dosage: CYCLE 2
     Route: 042
     Dates: start: 20100119
  4. TEMSIROLIMUS [Suspect]
     Active Substance: TEMSIROLIMUS
     Indication: CARCINOID TUMOUR
     Dosage: CYCLE 1
     Route: 042
     Dates: start: 20091222
  5. TEMSIROLIMUS [Suspect]
     Active Substance: TEMSIROLIMUS
     Dosage: CYCLE 7?THERAPY DISCONTINUED AFTER CYCLE 7 DUE TO ADVERSE EVNETS/SIDE EFFECTS/COMPLICATIONS
     Route: 042
     Dates: start: 20100601, end: 20100713
  6. BEVACIZUMAB [Suspect]
     Active Substance: BEVACIZUMAB
     Dosage: CYCLE 5?THE THERAPY DISCONTINUED AFTER CYCLE 5 DUE TO AN UNSPECIFIED REASON
     Route: 042
     Dates: start: 20100413
  7. TEMSIROLIMUS [Suspect]
     Active Substance: TEMSIROLIMUS
     Dosage: CYCLE 6
     Route: 042
     Dates: start: 20100601

REACTIONS (1)
  - Blood bilirubin increased [Unknown]
